FAERS Safety Report 9226707 (Version 1)
Quarter: 2013Q2

REPORT INFORMATION
  Report Type: Spontaneous
  Country: US (occurrence: None)
  Receive Date: 20130410
  Receipt Date: 20130410
  Transmission Date: 20140414
  Serious: Yes (Hospitalization)
  Sender: FDA-Public Use
  Company Number: None

PATIENT
  Age: 78 Year
  Sex: Female
  Weight: 52.5 kg

DRUGS (19)
  1. ECOTRIN [Suspect]
     Dosage: 325MG QAM PO
     Route: 048
  2. ARTHROTEC [Suspect]
     Dosage: 75-200MCG BID PO ?CHRONIC
     Route: 048
  3. ALEVE [Suspect]
  4. ZOLPIDEM [Concomitant]
  5. TOVIAZ [Concomitant]
  6. ENBREL [Concomitant]
  7. HCTZ/TRIAMTERENE [Concomitant]
  8. GABAPENTIN [Concomitant]
  9. NEXIUM [Concomitant]
  10. MUCINEX [Concomitant]
  11. CA+D [Concomitant]
  12. OMEGA3 [Concomitant]
  13. NORTRIPTYLINE [Concomitant]
  14. TRICOR [Concomitant]
  15. COLACE [Concomitant]
  16. MVI [Concomitant]
  17. ALBUTEROL [Concomitant]
  18. PROVENTIL [Concomitant]
  19. LORTAB [Concomitant]

REACTIONS (3)
  - Faeces discoloured [None]
  - Abdominal pain [None]
  - Dysphagia [None]
